FAERS Safety Report 21794947 (Version 1)
Quarter: 2022Q4

REPORT INFORMATION
  Report Type: Spontaneous
  Country: US (occurrence: None)
  Receive Date: 20221228
  Receipt Date: 20221228
  Transmission Date: 20230113
  Serious: Yes (Other)
  Sender: FDA-Public Use
  Company Number: None

PATIENT
  Sex: Female

DRUGS (11)
  1. ACTEMRA [Suspect]
     Active Substance: TOCILIZUMAB
     Indication: Rheumatoid arthritis
     Dosage: 162 MG/0.9ML SUBCUTANEOUS??INJECT 1 SYRINGE SUBUCTANEOUSLY ONCE A WEEK?
     Route: 058
     Dates: start: 20190806
  2. ASPIRIN [Concomitant]
     Active Substance: ASPIRIN
  3. ASTORVASTATIN [Concomitant]
  4. CARVEDILOL [Concomitant]
  5. FUROSEMIDE [Concomitant]
  6. GLIPIZIDE ER [Concomitant]
  7. INSULIN NOS [Concomitant]
     Active Substance: INSULIN NOS
  8. LEFLUNOMIDE [Concomitant]
  9. LOSARTAN POTASSIUM [Concomitant]
     Active Substance: LOSARTAN POTASSIUM
  10. METFORMIN [Concomitant]
  11. TRAMADOL HCL [Concomitant]

REACTIONS (1)
  - Surgery [None]
